FAERS Safety Report 5450245-7 (Version None)
Quarter: 2007Q3

REPORT INFORMATION
  Report Type: 
  Country: None (occurrence: None)
  Receive Date: 20070912
  Receipt Date: 20070831
  Transmission Date: 20080115
  Serious: Yes (Hospitalization, Other)
  Sender: FDA-Public Use
  Company Number: US-PFIZER INC-2005037690

PATIENT
  Sex: Female

DRUGS (2)
  1. DILANTIN [Suspect]
     Indication: CONVULSION
     Route: 048
  2. DOXYCYCLINE [Interacting]
     Indication: PNEUMONIA
     Dates: start: 20070801, end: 20070806

REACTIONS (15)
  - ABDOMINAL PAIN UPPER [None]
  - ANTICONVULSANT DRUG LEVEL DECREASED [None]
  - BRONCHITIS [None]
  - CONVULSION [None]
  - DECREASED APPETITE [None]
  - DRUG INTERACTION [None]
  - FATIGUE [None]
  - IMMUNE SYSTEM DISORDER [None]
  - INTENTIONAL DRUG MISUSE [None]
  - NO ADVERSE REACTION [None]
  - ORAL SURGERY [None]
  - PALPITATIONS [None]
  - PNEUMONIA PRIMARY ATYPICAL [None]
  - RASH [None]
  - SKIN EXFOLIATION [None]
